FAERS Safety Report 10267107 (Version 6)
Quarter: 2014Q4

REPORT INFORMATION
  Report Type: Spontaneous
  Country: RU (occurrence: RU)
  Receive Date: 20140630
  Receipt Date: 20141124
  Transmission Date: 20150528
  Serious: Yes (Other)
  Sender: FDA-Public Use
  Company Number: RU-AMGEN-RUSSP2014039095

PATIENT
  Age: 73 Year
  Sex: Male

DRUGS (19)
  1. FILGRASTIM [Suspect]
     Active Substance: FILGRASTIM
     Indication: PRODUCT USED FOR UNKNOWN INDICATION
     Dosage: 300 MKG, UNK
     Route: 065
     Dates: start: 20140307, end: 20140307
  2. FILGRASTIM [Suspect]
     Active Substance: FILGRASTIM
     Dosage: 300 MKG, 2 DAYS
     Route: 065
     Dates: start: 20140505, end: 20140505
  3. FILGRASTIM [Suspect]
     Active Substance: FILGRASTIM
     Dosage: 300 MKG, UNK
     Route: 065
     Dates: start: 20140512, end: 20140512
  4. BENDAMUSTINE [Concomitant]
     Active Substance: BENDAMUSTINE
     Dosage: UNK
     Route: 042
     Dates: start: 20140327
  5. LOPERAMIDE [Concomitant]
     Active Substance: LOPERAMIDE
     Dosage: 6 MG (2 MG, 3 IN 1 D)
     Route: 048
     Dates: start: 20140616, end: 20140618
  6. BENDAMUSTINE [Concomitant]
     Active Substance: BENDAMUSTINE
     Dosage: 70 MG/M2, 1 IN 1 D (INFUSION RATE: 120)
     Route: 042
     Dates: start: 20140227, end: 20140227
  7. NIFEDIPINE. [Concomitant]
     Active Substance: NIFEDIPINE
     Dosage: 20 MG, SINGLE DOSE
     Route: 048
     Dates: start: 20140226, end: 20140226
  8. VERAPAMIL [Concomitant]
     Active Substance: VERAPAMIL HYDROCHLORIDE
     Indication: ATRIAL TACHYCARDIA
     Dosage: 160 MG (80 MG, 2 IN 1 D)
     Route: 048
     Dates: start: 201401
  9. DEXAMETASON                        /00016001/ [Concomitant]
     Indication: PROPHYLAXIS
     Dosage: 20 MG, UNK
     Route: 042
     Dates: start: 20140226, end: 20140226
  10. SULFAMETHOXAZOLE AND TRIMETHOPRIM [Concomitant]
     Active Substance: SULFAMETHOXAZOLE\TRIMETHOPRIM
     Dosage: 1920 MG (960 MG, 2 IN 1 D)
     Route: 048
     Dates: start: 20140616, end: 20140620
  11. FILGRASTIM [Suspect]
     Active Substance: FILGRASTIM
     Indication: NEUTROPENIA
     Dosage: 300 MKG , UNK
     Route: 065
     Dates: start: 20140313, end: 20140313
  12. OBINUTUZUMAB [Suspect]
     Active Substance: OBINUTUZUMAB
     Indication: CHRONIC LYMPHOCYTIC LEUKAEMIA
     Dosage: 1000 MG, DAYS 1/2 IN SPLITED DOSE, 8 AND 15 OF CYCLE 1, AND ON DAY 1 OF CYCLES 2 TO 6
     Route: 042
     Dates: start: 20140226
  13. BENDAMUSTINE [Concomitant]
     Active Substance: BENDAMUSTINE
     Indication: CHRONIC LYMPHOCYTIC LEUKAEMIA
     Dosage: 70 MG/M2, 1 IN 1 D (INFUSION RATE: 120)
     Route: 042
     Dates: start: 20140226, end: 20140226
  14. FILGRASTIM [Suspect]
     Active Substance: FILGRASTIM
     Dosage: 300 MKG, UNK
     Route: 065
     Dates: start: 20140410, end: 20140410
  15. FILGRASTIM [Suspect]
     Active Substance: FILGRASTIM
     Dosage: 300 MKG, UNK
     Route: 065
     Dates: start: 20140417, end: 20140417
  16. FILGRASTIM [Suspect]
     Active Substance: FILGRASTIM
     Dosage: 300 MKG, UNK
     Route: 065
     Dates: start: 20140422, end: 20140422
  17. FILGRASTIM [Suspect]
     Active Substance: FILGRASTIM
     Dosage: 300 MKG, UNK
     Route: 065
     Dates: start: 20140428, end: 20140428
  18. FILGRASTIM [Suspect]
     Active Substance: FILGRASTIM
     Dosage: 300 MKG, UNK
     Route: 065
     Dates: start: 20140623, end: 20140623
  19. PROPANORM [Concomitant]
     Active Substance: PROPAFENONE
     Indication: ATRIAL TACHYCARDIA
     Dosage: 600 MG (300 MG, 2 IN 1 D)
     Route: 048
     Dates: start: 201401

REACTIONS (1)
  - Neutropenia [Recovered/Resolved]

NARRATIVE: CASE EVENT DATE: 20140307
